FAERS Safety Report 12690995 (Version 2)
Quarter: 2016Q3

REPORT INFORMATION
  Report Type: Report from Study
  Country: MX (occurrence: MX)
  Receive Date: 20160826
  Receipt Date: 20160926
  Transmission Date: 20161109
  Serious: Yes (Other)
  Sender: FDA-Public Use
  Company Number: PHHY2016MX116988

PATIENT
  Sex: Female

DRUGS (5)
  1. EXELON PATCH [Suspect]
     Active Substance: RIVASTIGMINE
     Indication: VEIN DISORDER
     Dosage: 4.6 MG, (PATCH 5 CM2)
     Route: 062
  2. EXELON PATCH [Suspect]
     Active Substance: RIVASTIGMINE
     Dosage: 9.5 MG, QD (PATCH 10 CM 2)
     Route: 062
  3. MICARDIS [Concomitant]
     Active Substance: TELMISARTAN
     Indication: PRODUCT USED FOR UNKNOWN INDICATION
     Route: 065
  4. MELOX [Concomitant]
     Active Substance: MELOXICAM
     Indication: PRODUCT USED FOR UNKNOWN INDICATION
     Dosage: UNK
     Route: 065
  5. GABAPENTIN. [Concomitant]
     Active Substance: GABAPENTIN
     Indication: PRODUCT USED FOR UNKNOWN INDICATION
     Route: 065

REACTIONS (13)
  - Gait disturbance [Unknown]
  - Thrombosis [Unknown]
  - Headache [Unknown]
  - Arthropathy [Unknown]
  - Balance disorder [Unknown]
  - Product use issue [Not Recovered/Not Resolved]
  - Dry mouth [Unknown]
  - Eye injury [Unknown]
  - Nasal injury [Unknown]
  - Head injury [Unknown]
  - Peripheral swelling [Unknown]
  - Dysphemia [Unknown]
  - Fall [Unknown]
